FAERS Safety Report 7647682-9 (Version None)
Quarter: 2011Q3

REPORT INFORMATION
  Report Type: 
  Country: None (occurrence: None)
  Receive Date: 20110801
  Receipt Date: 20110801
  Transmission Date: 20111222
  Serious: Yes (Disabling, Other)
  Sender: FDA-Public Use
  Company Number: None

PATIENT
  Age: 50 Year
  Sex: Male
  Weight: 72.65 kg

DRUGS (1)
  1. HURRICANE TOPICAL ANESTHETIC SP [Suspect]
     Indication: ECHOCARDIOGRAM
     Dates: start: 20110729, end: 20110729

REACTIONS (1)
  - METHAEMOGLOBINAEMIA [None]
